APPROVED DRUG PRODUCT: TOBRAMYCIN
Active Ingredient: TOBRAMYCIN
Strength: 300MG/5ML
Dosage Form/Route: SOLUTION;INHALATION
Application: A214478 | Product #001 | TE Code: AN
Applicant: MANKIND PHARMA LTD
Approved: Jun 30, 2023 | RLD: No | RS: No | Type: RX